FAERS Safety Report 6518714-6 (Version None)
Quarter: 2009Q4

REPORT INFORMATION
  Report Type: 
  Country: None (occurrence: None)
  Receive Date: 20091228
  Receipt Date: 20091221
  Transmission Date: 20100525
  Serious: Yes (Death)
  Sender: FDA-Public Use
  Company Number: PHEH2009US14220

PATIENT
  Sex: Male

DRUGS (1)
  1. EXJADE [Suspect]
     Indication: LYMPHOCYTIC LEUKAEMIA
     Dosage: 1125 MG, DAILY
     Route: 048
     Dates: start: 20090820

REACTIONS (4)
  - CHROMATURIA [None]
  - DEATH [None]
  - DECREASED APPETITE [None]
  - DIARRHOEA [None]
